FAERS Safety Report 9373321 (Version 1)
Quarter: 2013Q2

REPORT INFORMATION
  Report Type: Spontaneous
  Country: US (occurrence: US)
  Receive Date: 20130627
  Receipt Date: 20130627
  Transmission Date: 20140414
  Serious: No
  Sender: FDA-Public Use
  Company Number: US-B.I. PHARMACEUTICALS,INC./RIDGEFIELD-2013-BI-17766BP

PATIENT
  Age: 22 Year
  Sex: Male

DRUGS (4)
  1. COMBIVENT [Suspect]
     Indication: ASTHMA
     Dosage: STRENGTH: 20 MCG / 100 MCG;
     Route: 055
     Dates: start: 201305, end: 201305
  2. VENTOLIN [Concomitant]
     Indication: ASTHMA
     Route: 055
  3. SYMBICORT [Concomitant]
     Indication: ASTHMA
     Route: 055
  4. COMBIVENT MDI [Concomitant]
     Indication: ASTHMA

REACTIONS (4)
  - Dyspnoea [Recovered/Resolved]
  - Nervousness [Recovered/Resolved]
  - Chest discomfort [Unknown]
  - Dyspnoea [Unknown]
